FAERS Safety Report 6125126-6 (Version None)
Quarter: 2009Q1

REPORT INFORMATION
  Report Type: 
  Country: None (occurrence: None)
  Receive Date: 20090316
  Receipt Date: 20090303
  Transmission Date: 20090719
  Serious: Yes (Hospitalization)
  Sender: FDA-Public Use
  Company Number: 232078K08USA

PATIENT
  Age: 49 Year
  Sex: Female

DRUGS (5)
  1. REBIF [Suspect]
     Indication: MULTIPLE SCLEROSIS
     Dosage: 44 MCG; 22 MCG, 3 IN 1 WEEKS, SUBCUTANEOUS
     Route: 058
     Dates: start: 20070820
  2. BACLOFEN [Concomitant]
  3. TYLENOL (COTYLENOL) [Concomitant]
  4. CYMBALTA [Concomitant]
  5. KLONOPIN [Concomitant]

REACTIONS (4)
  - CYSTOPEXY [None]
  - RECTAL PROLAPSE REPAIR [None]
  - URINARY INCONTINENCE [None]
  - UTERINE DISORDER [None]
